FAERS Safety Report 4522140-9 (Version None)
Quarter: 2004Q4

REPORT INFORMATION
  Report Type: 
  Country: None (occurrence: None)
  Receive Date: 20041207
  Receipt Date: 20041123
  Transmission Date: 20050328
  Serious: Yes (Death)
  Sender: FDA-Public Use
  Company Number: CEL-2004-01867-ROC

PATIENT
  Age: 21 Year
  Sex: Male

DRUGS (4)
  1. METHYLPHENIDATE HCL [Suspect]
     Indication: COMPLETED SUICIDE
     Dosage: PO
     Route: 048
  2. ASPIRIN [Suspect]
     Indication: COMPLETED SUICIDE
     Dosage: PO
     Route: 048
  3. PSEUDOEPHEDRINE (PSEUDOEPHEDRINE) [Suspect]
     Indication: COMPLETED SUICIDE
     Dosage: PO
     Route: 048
  4. DIET SOLUTION [Suspect]
     Indication: COMPLETED SUICIDE
     Dosage: PO
     Route: 048

REACTIONS (9)
  - BLOOD BICARBONATE DECREASED [None]
  - BLOOD CALCIUM INCREASED [None]
  - BLOOD CREATININE INCREASED [None]
  - BLOOD POTASSIUM INCREASED [None]
  - CARDIAC ARREST [None]
  - COMPLETED SUICIDE [None]
  - GRAND MAL CONVULSION [None]
  - INTENTIONAL OVERDOSE [None]
  - THERAPEUTIC AGENT TOXICITY [None]
